FAERS Safety Report 10682103 (Version 3)
Quarter: 2015Q1

REPORT INFORMATION
  Report Type: Spontaneous
  Country: US (occurrence: US)
  Receive Date: 20141230
  Receipt Date: 20150226
  Transmission Date: 20150720
  Serious: Yes (Hospitalization, Other)
  Sender: FDA-Public Use
  Company Number: US-PFIZER INC-2014354769

PATIENT
  Sex: Male

DRUGS (2)
  1. ADVIL [Suspect]
     Active Substance: IBUPROFEN
     Indication: DISCOMFORT
     Dosage: 2 DF, 1 TO 2 TIMES A DAY
     Dates: start: 201412
  2. ADVIL [Suspect]
     Active Substance: IBUPROFEN
     Indication: MALAISE

REACTIONS (2)
  - Blood pressure increased [Recovered/Resolved]
  - Pneumonia [Recovered/Resolved]

NARRATIVE: CASE EVENT DATE: 201412
